FAERS Safety Report 20551963 (Version 1)
Quarter: 2022Q1

REPORT INFORMATION
  Report Type: Spontaneous
  Country: US (occurrence: US)
  Receive Date: 20220304
  Receipt Date: 20220304
  Transmission Date: 20220424
  Serious: Yes (Other)
  Sender: FDA-Public Use
  Company Number: US-BAYER-2022A028862

PATIENT
  Age: 32 Year
  Sex: Female

DRUGS (1)
  1. MIRENA [Suspect]
     Active Substance: LEVONORGESTREL
     Indication: Contraception
     Dosage: 20?G/DAY
     Route: 015
     Dates: start: 2018

REACTIONS (5)
  - Pregnancy with contraceptive device [Recovered/Resolved]
  - Device dislocation [None]
  - Malaise [Recovered/Resolved]
  - Drug ineffective [None]
  - Product monitoring error [None]

NARRATIVE: CASE EVENT DATE: 20200101
